FAERS Safety Report 7360389-0 (Version None)
Quarter: 2011Q1

REPORT INFORMATION
  Report Type: 
  Country: None (occurrence: None)
  Receive Date: 20110309
  Receipt Date: 20110217
  Transmission Date: 20110831
  Serious: Yes (Life-Threatening, Congenital Anomaly, Other)
  Sender: FDA-Public Use
  Company Number: FK201100223

PATIENT
  Sex: Male

DRUGS (9)
  1. MAGNESIUM SULFATE [Suspect]
     Indication: DRUG EXPOSURE DURING PREGNANCY
     Dosage: 23-2.5 G/HX8.5 WEEKS 8.5 W
  2. MAGNESIUM SULFATE [Suspect]
     Indication: TOCOLYSIS
     Dosage: 23-2.5 G/HX8.5 WEEKS 8.5 W
  3. SULINDAC [Concomitant]
  4. INDOMETHACIN [Concomitant]
  5. INSULIN (INSULIN) [Concomitant]
  6. CALCIUM CARBONATE [Concomitant]
  7. PRENATAL VITAMINS [Concomitant]
  8. TERBUTALINE SULFATE [Concomitant]
  9. BETAMETHASONE [Concomitant]

REACTIONS (9)
  - PREMATURE BABY [None]
  - CONGENITAL MUSCULOSKELETAL ANOMALY [None]
  - CAESAREAN SECTION [None]
  - ESCHERICHIA SEPSIS [None]
  - TOXICITY TO VARIOUS AGENTS [None]
  - CHORIOAMNIONITIS [None]
  - NEONATAL RESPIRATORY DISTRESS SYNDROME [None]
  - POLYHYDRAMNIOS [None]
  - MATERNAL DRUGS AFFECTING FOETUS [None]
